FAERS Safety Report 25423095 (Version 1)
Quarter: 2025Q2

REPORT INFORMATION
  Report Type: Spontaneous
  Country: US (occurrence: None)
  Receive Date: 20250610
  Receipt Date: 20250610
  Transmission Date: 20250717
  Serious: Yes (Hospitalization)
  Sender: FDA-CTU
  Company Number: None

PATIENT
  Age: 81 Year
  Sex: Male
  Weight: 106 kg

DRUGS (1)
  1. APIXABAN [Suspect]
     Active Substance: APIXABAN
     Indication: Atrial fibrillation
     Dosage: FREQUENCY : TWICE A DAY;?
     Route: 048
     Dates: start: 20221222

REACTIONS (7)
  - Chest pain [None]
  - Abdominal tenderness [None]
  - Haemoglobin decreased [None]
  - Haematocrit decreased [None]
  - Faecal occult blood positive [None]
  - Gastric polyps [None]
  - Gastrointestinal polyp haemorrhage [None]

NARRATIVE: CASE EVENT DATE: 20241127
